FAERS Safety Report 6682435-X (Version None)
Quarter: 2010Q2

REPORT INFORMATION
  Report Type: 
  Country: None (occurrence: None)
  Receive Date: 20100415
  Receipt Date: 20100408
  Transmission Date: 20101027
  Serious: Yes (Other)
  Sender: FDA-Public Use
  Company Number: US-PFIZER INC-2010045467

PATIENT
  Age: 80 Year
  Sex: Male

DRUGS (3)
  1. ATGAM [Suspect]
     Indication: APLASTIC ANAEMIA
     Dosage: 40 MG/KG, UNK
     Route: 042
     Dates: start: 20100330, end: 20100331
  2. CYCLOSPORINE [Concomitant]
     Dosage: 250 MG, 2X/DAY
  3. FUROSEMIDE [Concomitant]
     Dosage: 20 MG, 2X/DAY

REACTIONS (4)
  - CHILLS [None]
  - HAEMOGLOBIN DECREASED [None]
  - MALAISE [None]
  - PYREXIA [None]
